FAERS Safety Report 6585486-9 (Version None)
Quarter: 2010Q1

REPORT INFORMATION
  Report Type: 
  Country: None (occurrence: None)
  Receive Date: 20100217
  Receipt Date: 20100208
  Transmission Date: 20100710
  Serious: Yes (Hospitalization)
  Sender: FDA-Public Use
  Company Number: US-MERCK-1002USA01480

PATIENT
  Sex: Male

DRUGS (2)
  1. VYTORIN [Suspect]
     Indication: BLOOD CHOLESTEROL
     Route: 048
  2. LANTUS [Suspect]
     Route: 065

REACTIONS (3)
  - ABASIA [None]
  - MUSCLE DISORDER [None]
  - RENAL FAILURE [None]
